FAERS Safety Report 8057169-X (Version None)
Quarter: 2012Q1

REPORT INFORMATION
  Report Type: 
  Country: None (occurrence: None)
  Receive Date: 20120119
  Receipt Date: 20120105
  Transmission Date: 20120608
  Serious: Yes (Death, Other)
  Sender: FDA-Public Use
  Company Number: PHHY2012IE004360

PATIENT
  Sex: Male
  Weight: 82 kg

DRUGS (3)
  1. VOLTAREN [Suspect]
     Indication: ANALGESIC THERAPY
     Dosage: 1 DF, PRN
     Route: 048
  2. ABIRATERONE ACETATE [Suspect]
     Indication: PROSTATE CANCER METASTATIC
     Dosage: 1000 MG, 1 TABLET IN ONE DAY
     Route: 048
     Dates: start: 20111010, end: 20111019
  3. PREDNISOLONE [Suspect]
     Indication: PROSTATE CANCER METASTATIC
     Dosage: 05 MG, BID
     Route: 048

REACTIONS (13)
  - RED BLOOD CELL COUNT INCREASED [None]
  - PROSTATE CANCER METASTATIC [None]
  - BLOOD TESTOSTERONE DECREASED [None]
  - NEUTROPHIL COUNT INCREASED [None]
  - METASTASES TO LIVER [None]
  - RED CELL DISTRIBUTION WIDTH INCREASED [None]
  - BLOOD CALCIUM DECREASED [None]
  - LIVER FUNCTION TEST ABNORMAL [None]
  - BLOOD GLUCOSE INCREASED [None]
  - PLATELET COUNT INCREASED [None]
  - METASTASES TO BONE [None]
  - SPINAL COLUMN STENOSIS [None]
  - HAEMATOCRIT DECREASED [None]
